FAERS Safety Report 20970403 (Version 1)
Quarter: 2022Q2

REPORT INFORMATION
  Report Type: Spontaneous
  Country: US (occurrence: US)
  Receive Date: 20220616
  Receipt Date: 20220616
  Transmission Date: 20220721
  Serious: No
  Sender: FDA-Public Use
  Company Number: US-SANOFI-01129672

PATIENT
  Sex: Female

DRUGS (2)
  1. DUPIXENT [Suspect]
     Active Substance: DUPILUMAB
     Indication: Eczema
     Dosage: UNK UNK, QOW
  2. HYDRAZINE SULFATE [Concomitant]
     Active Substance: HYDRAZINE SULFATE

REACTIONS (3)
  - Rash macular [Unknown]
  - Pruritus [Unknown]
  - Rash papular [Unknown]
